FAERS Safety Report 18923980 (Version 3)
Quarter: 2024Q4

REPORT INFORMATION
  Report Type: Spontaneous
  Country: CA (occurrence: CA)
  Receive Date: 20210222
  Receipt Date: 20241011
  Transmission Date: 20250115
  Serious: Yes (Life-Threatening, Hospitalization, Other)
  Sender: TAKEDA
  Company Number: CA-TAKEDA-2021TUS010850

PATIENT
  Age: 72 Year
  Sex: Female

DRUGS (7)
  1. GAMMAGARD S/D [Suspect]
     Active Substance: HUMAN IMMUNOGLOBULIN G
     Indication: Product used for unknown indication
     Dosage: UNK
     Route: 042
  2. GAMMAGARD S/D [Suspect]
     Active Substance: HUMAN IMMUNOGLOBULIN G
     Indication: Product used for unknown indication
     Dosage: UNK
     Route: 042
  3. GAMMAGARD S/D [Suspect]
     Active Substance: HUMAN IMMUNOGLOBULIN G
     Dosage: 10 GRAM
     Route: 065
     Dates: start: 20200813
  4. GAMMAGARD S/D [Suspect]
     Active Substance: HUMAN IMMUNOGLOBULIN G
     Dosage: 10 GRAM
     Route: 065
     Dates: start: 20200813
  5. HUMAN IMMUNOGLOBULIN G [Suspect]
     Active Substance: HUMAN IMMUNOGLOBULIN G
     Indication: Product used for unknown indication
     Dosage: UNK
     Route: 042
  6. HUMAN IMMUNOGLOBULIN G [Suspect]
     Active Substance: HUMAN IMMUNOGLOBULIN G
     Dosage: 20 GRAM
     Route: 065
     Dates: start: 20200813
  7. PLATELETS [Concomitant]
     Active Substance: HUMAN PLATELET, ALLOGENIC
     Dosage: UNK
     Route: 042

REACTIONS (16)
  - Transfusion-related circulatory overload [Unknown]
  - Transfusion-associated dyspnoea [Unknown]
  - Febrile nonhaemolytic transfusion reaction [Unknown]
  - Respiratory rate increased [Unknown]
  - Oxygen saturation decreased [Unknown]
  - Eye swelling [Unknown]
  - Body temperature increased [Unknown]
  - Bronchospasm [Unknown]
  - Hypoxia [Unknown]
  - Wheezing [Unknown]
  - Blood pressure increased [Unknown]
  - Dyspnoea [Unknown]
  - Angioedema [Unknown]
  - Tachycardia [Unknown]
  - Pyrexia [Unknown]
  - Infusion related reaction [Unknown]

NARRATIVE: CASE EVENT DATE: 20200813
